FAERS Safety Report 22031716 (Version 1)
Quarter: 2023Q1

REPORT INFORMATION
  Report Type: Other
  Country: CN (occurrence: None)
  Receive Date: 20230224
  Receipt Date: 20230224
  Transmission Date: 20230418
  Serious: Yes (Other)
  Sender: FDA-Public Use
  Company Number: CN-ROCHE-3290495

PATIENT
  Age: 41 Year
  Sex: Female

DRUGS (9)
  1. BEVACIZUMAB [Suspect]
     Active Substance: BEVACIZUMAB
     Indication: Ovarian cancer recurrent
     Dosage: 7 CYCLES
     Route: 042
     Dates: start: 201804, end: 201810
  2. BEVACIZUMAB [Suspect]
     Active Substance: BEVACIZUMAB
     Dosage: 4 CYCLES
     Route: 042
     Dates: start: 20191115, end: 20200207
  3. BEVACIZUMAB [Suspect]
     Active Substance: BEVACIZUMAB
     Dosage: 5 CYCLES
     Route: 042
     Dates: start: 20190614, end: 20191017
  4. BEVACIZUMAB [Suspect]
     Active Substance: BEVACIZUMAB
     Dosage: 1 CYCLES
     Route: 042
     Dates: start: 20200307
  5. IRINOTECAN [Suspect]
     Active Substance: IRINOTECAN
     Indication: Ovarian cancer recurrent
     Dosage: ON D1, D8, D15
     Route: 065
     Dates: start: 201804, end: 201810
  6. OLAPARIB [Suspect]
     Active Substance: OLAPARIB
     Indication: Ovarian cancer recurrent
     Route: 048
     Dates: start: 20190614, end: 20191017
  7. DOXORUBICIN HYDROCHLORIDE [Suspect]
     Active Substance: DOXORUBICIN HYDROCHLORIDE
     Indication: Ovarian cancer recurrent
     Route: 065
     Dates: start: 20191115, end: 20200207
  8. DOXORUBICIN HYDROCHLORIDE [Suspect]
     Active Substance: DOXORUBICIN HYDROCHLORIDE
     Route: 065
     Dates: start: 20200307
  9. CISPLATIN [Suspect]
     Active Substance: CISPLATIN
     Indication: Ovarian cancer recurrent
     Route: 065
     Dates: start: 20200307

REACTIONS (2)
  - Renal impairment [Unknown]
  - Disease progression [Unknown]
